FAERS Safety Report 9988212 (Version 2)
Quarter: 2014Q1

REPORT INFORMATION
  Report Type: Report from Study
  Country: NL (occurrence: NL)
  Receive Date: 20140309
  Receipt Date: 20140326
  Transmission Date: 20141002
  Serious: Yes (Death)
  Sender: FDA-Public Use
  Company Number: PHHY2014NL028459

PATIENT
  Sex: Female

DRUGS (3)
  1. ACLASTA [Suspect]
     Indication: OSTEOPOROSIS
     Dosage: 5 MG, ONCE EVERY 52 WEEKS
     Route: 042
     Dates: start: 201302
  2. ACLASTA [Suspect]
     Indication: SPINAL COMPRESSION FRACTURE
  3. CALCICHEW D3 [Concomitant]
     Dosage: 500/ 800, 1DD1
     Route: 048

REACTIONS (2)
  - Death [Fatal]
  - Gait disturbance [Unknown]
